FAERS Safety Report 15302476 (Version 1)
Quarter: 2018Q3

REPORT INFORMATION
  Report Type: Spontaneous
  Country: US (occurrence: US)
  Receive Date: 20180821
  Receipt Date: 20180821
  Transmission Date: 20181010
  Serious: No
  Sender: FDA-Public Use
  Company Number: US-BAYER-2018-153361

PATIENT
  Sex: Female

DRUGS (2)
  1. MILK OF MAGNESIA [Suspect]
     Active Substance: MAGNESIUM HYDROXIDE
     Indication: GASTROINTESTINAL DISORDER
     Dosage: EVERY TEN DAYS
     Route: 048
  2. MIRALAX [Suspect]
     Active Substance: POLYETHYLENE GLYCOL 3350
     Dosage: EVERY TEN DAYS

REACTIONS (5)
  - Wrong technique in product usage process [Unknown]
  - Dry mouth [None]
  - Incorrect dosage administered [Unknown]
  - Abdominal discomfort [None]
  - Product prescribing issue [Unknown]

NARRATIVE: CASE EVENT DATE: 20180813
